FAERS Safety Report 21264625 (Version 5)
Quarter: 2022Q4

REPORT INFORMATION
  Report Type: Report from Study
  Country: GB (occurrence: GB)
  Receive Date: 20220829
  Receipt Date: 20221031
  Transmission Date: 20230112
  Serious: Yes (Hospitalization)
  Sender: FDA-Public Use
  Company Number: GB-ASTELLAS-2022US029266

PATIENT
  Age: 70 Year
  Sex: Male

DRUGS (12)
  1. ENFORTUMAB VEDOTIN [Suspect]
     Active Substance: ENFORTUMAB VEDOTIN
     Indication: Transitional cell carcinoma
     Dosage: 1.25 MG/KG, CYCLIC (ON DAYS 1 AND 8 OF EVERY 3-WEEK CYCLE)
     Route: 042
     Dates: start: 20220722
  2. PEMBROLIZUMAB [Suspect]
     Active Substance: PEMBROLIZUMAB
     Indication: Transitional cell carcinoma
     Route: 042
     Dates: start: 20220722
  3. BUMETANIDE [Concomitant]
     Active Substance: BUMETANIDE
     Indication: Left ventricular dysfunction
     Dosage: 0.5 MG, AS NEEDED (EVERY MORNING AS NEEDED)
     Route: 048
     Dates: start: 20220128
  4. TAMSULOSIN [Concomitant]
     Active Substance: TAMSULOSIN
     Indication: Prophylaxis urinary tract infection
     Dosage: 400 ?G, ONCE DAILY (400 ?G, QD )
     Route: 048
     Dates: start: 20160504
  5. SPIRONOLACTONE [Concomitant]
     Active Substance: SPIRONOLACTONE
     Indication: Product used for unknown indication
     Dosage: 12.5 MG, ONCE DAILY (QAM)
     Route: 048
  6. RAMIPRIL [Concomitant]
     Active Substance: RAMIPRIL
     Indication: Left ventricular dysfunction
     Route: 048
     Dates: start: 20190904
  7. SOLIFENACIN [Concomitant]
     Active Substance: SOLIFENACIN
     Indication: Product used for unknown indication
     Route: 048
  8. FINASTERIDE [Concomitant]
     Active Substance: FINASTERIDE
     Indication: Prophylaxis
     Route: 048
     Dates: start: 20200706
  9. BISOPROLOL [Concomitant]
     Active Substance: BISOPROLOL
     Indication: Left ventricular dysfunction
     Dosage: 2.5 MG, TWICE DAILY (2.5 MG, BID)
     Route: 048
     Dates: start: 20190514
  10. ALLOPURINOL [Concomitant]
     Active Substance: ALLOPURINOL
     Indication: Gout
     Route: 048
     Dates: start: 20160413
  11. APIXABAN [Concomitant]
     Active Substance: APIXABAN
     Indication: Atrial fibrillation
     Dosage: 2.5 MG, TWICE DAILY (2.5 MG, BID Q12 HR)
     Route: 048
     Dates: start: 20190514
  12. FOLIC ACID [Concomitant]
     Active Substance: FOLIC ACID
     Indication: Product used for unknown indication
     Route: 048

REACTIONS (1)
  - Ventricular tachycardia [Recovered/Resolved]

NARRATIVE: CASE EVENT DATE: 20220807
